FAERS Safety Report 5909757-1 (Version None)
Quarter: 2008Q4

REPORT INFORMATION
  Report Type: 
  Country: None (occurrence: None)
  Receive Date: 20081002
  Receipt Date: 20080918
  Transmission Date: 20090506
  Serious: Yes (Other)
  Sender: FDA-Public Use
  Company Number: MEDI-0007149

PATIENT
  Sex: Male

DRUGS (7)
  1. SYNAGIS [Suspect]
     Indication: RESPIRATORY SYNCYTIAL VIRUS INFECTION
     Dosage: INTRAMUSCULAR
     Route: 030
     Dates: start: 20050901
  2. SYNAGIS [Suspect]
     Indication: RESPIRATORY SYNCYTIAL VIRUS INFECTION
     Dosage: INTRAMUSCULAR
     Route: 030
     Dates: start: 20051001
  3. SYNAGIS [Suspect]
     Indication: RESPIRATORY SYNCYTIAL VIRUS INFECTION
     Dosage: INTRAMUSCULAR
     Route: 030
     Dates: start: 20051101
  4. SYNAGIS [Suspect]
     Indication: RESPIRATORY SYNCYTIAL VIRUS INFECTION
     Dosage: INTRAMUSCULAR
     Route: 030
     Dates: start: 20051201
  5. SYNAGIS [Suspect]
     Indication: RESPIRATORY SYNCYTIAL VIRUS INFECTION
     Dosage: INTRAMUSCULAR
     Route: 030
     Dates: start: 20060101
  6. SYNAGIS [Suspect]
     Indication: RESPIRATORY SYNCYTIAL VIRUS INFECTION
     Dosage: INTRAMUSCULAR
     Route: 030
     Dates: start: 20060201
  7. SYNAGIS [Suspect]
     Indication: RESPIRATORY SYNCYTIAL VIRUS INFECTION
     Dosage: INTRAMUSCULAR
     Route: 030
     Dates: start: 20060301

REACTIONS (2)
  - BRONCHITIS [None]
  - RESPIRATORY SYNCYTIAL VIRUS INFECTION [None]
